FAERS Safety Report 13322503 (Version 2)
Quarter: 2017Q1

REPORT INFORMATION
  Report Type: Spontaneous
  Country: US (occurrence: US)
  Receive Date: 20170309
  Receipt Date: 20170320
  Transmission Date: 20170428
  Serious: Yes (Other)
  Sender: FDA-Public Use
  Company Number: US-PFIZER INC-2017101450

PATIENT
  Sex: Female
  Weight: 55 kg

DRUGS (3)
  1. ZARAH [Concomitant]
     Active Substance: DROSPIRENONE\ETHINYL ESTRADIOL
     Indication: ORAL CONTRACEPTION
     Dosage: UNK, 1X/DAY
  2. PRISTIQ EXTENDED-RELEASE [Suspect]
     Active Substance: DESVENLAFAXINE SUCCINATE
     Indication: ANXIETY
     Dosage: 75 MG, 1X/DAY
     Dates: start: 2017
  3. PRISTIQ EXTENDED-RELEASE [Suspect]
     Active Substance: DESVENLAFAXINE SUCCINATE
     Indication: DEPRESSION
     Dosage: 100 MG, 1X/DAY
     Dates: start: 2012, end: 2017

REACTIONS (14)
  - Withdrawal syndrome [Unknown]
  - Nausea [Unknown]
  - Paraesthesia [Unknown]
  - Feeling abnormal [Unknown]
  - Diarrhoea [Unknown]
  - Vomiting [Unknown]
  - Suicidal ideation [Unknown]
  - Mania [Unknown]
  - Pain [Unknown]
  - Hyperhidrosis [Unknown]
  - Anxiety [Unknown]
  - Vulvovaginal dryness [Unknown]
  - Orgasm abnormal [Unknown]
  - Migraine [Not Recovered/Not Resolved]
